FAERS Safety Report 16364626 (Version 1)
Quarter: 2019Q2

REPORT INFORMATION
  Report Type: Spontaneous
  Country: US (occurrence: US)
  Receive Date: 20190529
  Receipt Date: 20190529
  Transmission Date: 20190711
  Serious: No
  Sender: FDA-Public Use
  Company Number: US-MEDIMETRIKS-2018-US-012284

PATIENT
  Age: 76 Year
  Sex: Female
  Weight: 65.77 kg

DRUGS (8)
  1. SELSUN BLUE NDC# 60432-528-04 [Suspect]
     Active Substance: SELENIUM SULFIDE
     Dosage: APPLIED THREE TIMES WEEKLY
     Route: 061
     Dates: start: 20180709
  2. LOPRESSOR [Concomitant]
     Active Substance: METOPROLOL TARTRATE
  3. LASIX [Concomitant]
     Active Substance: FUROSEMIDE
  4. ALLOPURINOL. [Concomitant]
     Active Substance: ALLOPURINOL
  5. AMLODIPINE [Concomitant]
     Active Substance: AMLODIPINE BESYLATE
  6. CALCITRIOL. [Concomitant]
     Active Substance: CALCITRIOL
  7. FLUOCINOLONE ACETONIDE TOPICAL [Suspect]
     Active Substance: FLUOCINOLONE ACETONIDE
     Indication: ERYTHEMA
     Dosage: APPLIED TWICE A DAY
     Route: 061
     Dates: start: 20180709, end: 20180718
  8. LISINOPRIL. [Concomitant]
     Active Substance: LISINOPRIL

REACTIONS (2)
  - Dandruff [Not Recovered/Not Resolved]
  - Skin irritation [Recovered/Resolved]

NARRATIVE: CASE EVENT DATE: 201807
